FAERS Safety Report 16427106 (Version 1)
Quarter: 2019Q2

REPORT INFORMATION
  Report Type: Spontaneous
  Country: US (occurrence: US)
  Receive Date: 20190613
  Receipt Date: 20190613
  Transmission Date: 20190711
  Serious: Yes (Life-Threatening, Hospitalization)
  Sender: FDA-Public Use
  Company Number: US-TEVA-2019-US-1061403

PATIENT
  Age: 17 Year
  Sex: Female

DRUGS (3)
  1. NALOXONE [Suspect]
     Active Substance: NALOXONE
     Indication: SOMNOLENCE
     Route: 042
  2. CLONIDINE. [Suspect]
     Active Substance: CLONIDINE
     Indication: PRODUCT USED FOR UNKNOWN INDICATION
     Dosage: 160 TABLETS
     Route: 048
  3. ATROPINE. [Concomitant]
     Active Substance: ATROPINE
     Indication: BRADYCARDIA
     Route: 042

REACTIONS (9)
  - Hypertension [Unknown]
  - Mental status changes [Unknown]
  - Overdose [Unknown]
  - Bradycardia [Unknown]
  - Somnolence [Unknown]
  - Hypotension [Unknown]
  - Systolic dysfunction [Unknown]
  - Ejection fraction decreased [Unknown]
  - Pulmonary oedema [Unknown]
